FAERS Safety Report 13554879 (Version 1)
Quarter: 2017Q2

REPORT INFORMATION
  Report Type: Spontaneous
  Country: US (occurrence: US)
  Receive Date: 20170517
  Receipt Date: 20170517
  Transmission Date: 20170830
  Serious: Yes (Hospitalization, Other)
  Sender: FDA-Public Use
  Company Number: US-MYLANLABS-2017M1029238

PATIENT

DRUGS (1)
  1. ASCORBIC ACID. [Suspect]
     Active Substance: ASCORBIC ACID
     Indication: CONSTIPATION
     Dosage: 6G DAILY FOR ONE WEEK
     Route: 065

REACTIONS (6)
  - Intentional product misuse [Recovering/Resolving]
  - Hyperkalaemia [Unknown]
  - Electrocardiogram QRS complex prolonged [Unknown]
  - Renal failure [Recovering/Resolving]
  - Crystal nephropathy [Recovering/Resolving]
  - Electrocardiogram T wave peaked [Unknown]
